FAERS Safety Report 5740398-5 (Version None)
Quarter: 2008Q2

REPORT INFORMATION
  Report Type: 
  Country: None (occurrence: None)
  Receive Date: 20080516
  Receipt Date: 20080508
  Transmission Date: 20081010
  Serious: Yes (Other)
  Sender: FDA-Public Use
  Company Number: CH-ASTRAZENECA-2008PK00985

PATIENT
  Age: 74 Year
  Sex: Female

DRUGS (6)
  1. SEROQUEL [Suspect]
     Indication: BIPOLAR DISORDER
     Route: 048
     Dates: start: 20070215
  2. DEPAKENE [Suspect]
     Indication: BIPOLAR DISORDER
     Route: 048
     Dates: start: 20070601, end: 20080423
  3. ZYPREXA [Suspect]
     Indication: BIPOLAR DISORDER
     Route: 048
     Dates: start: 20060101
  4. ENATEC [Concomitant]
     Indication: HYPERTENSION
     Dates: start: 20040101
  5. METFIN [Concomitant]
     Indication: GLUCOSE TOLERANCE TEST ABNORMAL
     Route: 048
     Dates: start: 20070101
  6. DISTRANEURIN [Concomitant]

REACTIONS (1)
  - THROMBOCYTOPENIA [None]
